FAERS Safety Report 7366822-2 (Version None)
Quarter: 2011Q1

REPORT INFORMATION
  Report Type: 
  Country: None (occurrence: None)
  Receive Date: 20110322
  Receipt Date: 20110311
  Transmission Date: 20110831
  Serious: Yes (Life-Threatening)
  Sender: FDA-Public Use
  Company Number: BR-ROCHE-766175

PATIENT
  Sex: Male

DRUGS (2)
  1. ROACUTAN [Suspect]
     Dosage: DOSE: 20 MG/CAP; FREQUENCY: 2 CAPS/DAY
     Route: 048
     Dates: start: 20090420, end: 20091001
  2. ROACUTAN [Suspect]
     Dosage: DOSE, ROUTE, FREQUENCY: NOT REPORTED
     Route: 048
     Dates: start: 20100601

REACTIONS (3)
  - CHAPPED LIPS [None]
  - SUICIDE ATTEMPT [None]
  - SKIN EXFOLIATION [None]
